FAERS Safety Report 14267116 (Version 1)
Quarter: 2017Q4

REPORT INFORMATION
  Report Type: Spontaneous
  Country: US (occurrence: US)
  Receive Date: 20171211
  Receipt Date: 20171211
  Transmission Date: 20180321
  Serious: No
  Sender: FDA-Public Use
  Company Number: US-PFIZER INC-2017524383

PATIENT
  Age: 79 Year
  Sex: Female
  Weight: 77 kg

DRUGS (2)
  1. COLESTIPOL HCL [Concomitant]
     Active Substance: COLESTIPOL HYDROCHLORIDE
     Indication: DIARRHOEA
     Dosage: 1 G, 1X/DAY
  2. ATROPINE SULFATE/DIPHENOXYLATE HYDROCHLORIDE [Suspect]
     Active Substance: ATROPINE SULFATE\DIPHENOXYLATE HYDROCHLORIDE
     Indication: DIARRHOEA
     Dosage: UNK, (25-0.25) (THREE TO FOUR TIMES A DAY)
     Route: 048

REACTIONS (4)
  - Somnolence [Unknown]
  - Drug ineffective [Unknown]
  - Diarrhoea [None]
  - Product use issue [Unknown]
